FAERS Safety Report 15257797 (Version 1)
Quarter: 2018Q3

REPORT INFORMATION
  Report Type: Spontaneous
  Country: US (occurrence: US)
  Receive Date: 20180718
  Receipt Date: 20180718
  Transmission Date: 20181010
  Serious: Yes (Other)
  Sender: FDA-Public Use
  Company Number: None

PATIENT
  Age: 59 Year
  Sex: Male
  Weight: 74.5 kg

DRUGS (9)
  1. ATENOLOL. [Concomitant]
     Active Substance: ATENOLOL
  2. YESCARTA [Suspect]
     Active Substance: AXICABTAGENE CILOLEUCEL
     Indication: DIFFUSE LARGE B-CELL LYMPHOMA
     Route: 041
     Dates: start: 20180416, end: 20180416
  3. AMLODIPINE [Concomitant]
     Active Substance: AMLODIPINE BESYLATE
  4. ACETAMINOPHEN. [Concomitant]
     Active Substance: ACETAMINOPHEN
  5. TRIAMCINOLONE [Concomitant]
     Active Substance: TRIAMCINOLONE
  6. ONDANSETRON [Concomitant]
     Active Substance: ONDANSETRON
  7. SILDENAFIL. [Concomitant]
     Active Substance: SILDENAFIL
  8. FLUTICASONE. [Concomitant]
     Active Substance: FLUTICASONE
  9. SILDENAFIL CITRATE. [Concomitant]
     Active Substance: SILDENAFIL CITRATE

REACTIONS (5)
  - Pyrexia [None]
  - Somnolence [None]
  - Hyponatraemia [None]
  - Headache [None]
  - Neurotoxicity [None]

NARRATIVE: CASE EVENT DATE: 20180416
